FAERS Safety Report 4424661-6 (Version None)
Quarter: 2004Q3

REPORT INFORMATION
  Report Type: 
  Country: None (occurrence: None)
  Receive Date: 20040805
  Receipt Date: 20040727
  Transmission Date: 20050211
  Serious: Yes (Hospitalization)
  Sender: FDA-Public Use
  Company Number: TPG2004A00129

PATIENT
  Age: 51 Year
  Sex: Male

DRUGS (8)
  1. ACTOS [Suspect]
     Indication: DIABETES MELLITUS
     Dosage: 30 MG, PER ORAL
     Route: 048
     Dates: start: 20040513
  2. ATORVASTATIN CALCIUM [Suspect]
     Indication: HYPERLIPIDAEMIA
     Dosage: 20 MG (20, PER ORAL
     Route: 048
  3. METOPROLOL SUCCINATE [Concomitant]
  4. DELIX 5 PLUS    (SALUTEC) [Concomitant]
  5. RAMIPRIL [Concomitant]
     Dosage: 5MG PLUS HYDROCHLOROTHIAZIDE 12.5MG
     Route: 048
  6. GLUCOPHAGE (METFORMING HYDROCHLORIDE) [Concomitant]
     Route: 048
  7. NORVASC [Concomitant]
     Route: 048
  8. GLUCOBAY [Concomitant]
     Indication: DIABETES MELLITUS
     Dosage: 50MG
     Route: 048

REACTIONS (9)
  - BLOOD CREATINE PHOSPHOKINASE INCREASED [None]
  - BLOOD LACTATE DEHYDROGENASE INCREASED [None]
  - DIABETES MELLITUS INADEQUATE CONTROL [None]
  - DIZZINESS [None]
  - DRUG INTERACTION [None]
  - FEELING ABNORMAL [None]
  - MUSCLE DISORDER [None]
  - MYALGIA [None]
  - TRANSAMINASES INCREASED [None]
